FAERS Safety Report 9815028 (Version 3)
Quarter: 2016Q3

REPORT INFORMATION
  Report Type: Spontaneous
  Country: BR (occurrence: BR)
  Receive Date: 20140114
  Receipt Date: 20160728
  Transmission Date: 20161109
  Serious: Yes (Other)
  Sender: FDA-Public Use
  Company Number: BR-AMGEN-BRASP2014001889

PATIENT
  Age: 74 Year
  Sex: Female
  Weight: 42 kg

DRUGS (9)
  1. INSULIN [Concomitant]
     Active Substance: INSULIN NOS
     Indication: DIABETES MELLITUS
     Dosage: 12 MG/DAY
     Dates: start: 201312
  2. CAPTOPRIL. [Concomitant]
     Active Substance: CAPTOPRIL
     Indication: HYPERTENSION
     Dosage: 25 MG, TWICE DAILY
  3. GLIMEPIRIDE. [Concomitant]
     Active Substance: GLIMEPIRIDE
     Dosage: 4 MG, 1X/DAY
  4. CAPTOPRIL. [Concomitant]
     Active Substance: CAPTOPRIL
     Indication: HYPERTENSION
     Dosage: 2 TABLETS/DAY
     Dates: start: 2007
  5. INSULIN [Concomitant]
     Active Substance: INSULIN NOS
     Dosage: 12 IU, ONCE DAILY
  6. ENBREL [Suspect]
     Active Substance: ETANERCEPT
     Indication: RHEUMATOID ARTHRITIS
     Dosage: 50 MG, ONCE WEEKLY
     Route: 058
     Dates: end: 201406
  7. DIABINESE [Concomitant]
     Active Substance: CHLORPROPAMIDE
     Dosage: 1 TABLET/DAY
     Route: 048
     Dates: start: 201402
  8. OSTEOFORM                          /00751501/ [Concomitant]
     Dosage: 1 TABLET/WEEK
  9. PREDNISONE. [Concomitant]
     Active Substance: PREDNISONE
     Dosage: 20 MG, 1X/DAY

REACTIONS (3)
  - Hypoglycaemia [Unknown]
  - Seizure [Unknown]
  - Pain [Unknown]

NARRATIVE: CASE EVENT DATE: 2013
